FAERS Safety Report 9843504 (Version 1)
Quarter: 2013Q4

REPORT INFORMATION
  Report Type: Spontaneous
  Country: US (occurrence: None)
  Receive Date: 20131223
  Receipt Date: 20131223
  Transmission Date: 20140711
  Serious: Yes (Other)
  Sender: FDA-Public Use
  Company Number: 2191494LEO

PATIENT
  Sex: Male

DRUGS (1)
  1. PICATO (0.015%, GEL) [Suspect]
     Indication: PRECANCEROUS CELLS PRESENT
     Route: 061

REACTIONS (2)
  - Drug ineffective [None]
  - Inappropriate schedule of drug administration [None]
